FAERS Safety Report 7541593-5 (Version None)
Quarter: 2011Q2

REPORT INFORMATION
  Report Type: 
  Country: None (occurrence: None)
  Receive Date: 20110613
  Receipt Date: 20110603
  Transmission Date: 20111010
  Serious: Yes (Hospitalization)
  Sender: FDA-Public Use
  Company Number: CA-ELI_LILLY_AND_COMPANY-CA201106000900

PATIENT
  Sex: Male

DRUGS (7)
  1. RISPERIDONE [Concomitant]
  2. ZYPREXA [Suspect]
     Indication: SCHIZOAFFECTIVE DISORDER
     Dosage: 5 MG, BID
     Dates: start: 20060503, end: 20100505
  3. CELEXA [Concomitant]
  4. ZYPREXA [Suspect]
     Dosage: 7.5 MG, BID
  5. LORAZEPAM [Concomitant]
  6. ZYPREXA [Suspect]
     Dosage: 15 MG, EACH EVENING
  7. ZYPREXA [Suspect]
     Dosage: 12.5 MG, QD

REACTIONS (7)
  - HYPERTENSION [None]
  - HEPATIC STEATOSIS [None]
  - PANCREATITIS ACUTE [None]
  - ANAEMIA [None]
  - TYPE 2 DIABETES MELLITUS [None]
  - PANCREATIC PSEUDOCYST [None]
  - OVERDOSE [None]
